FAERS Safety Report 13679815 (Version 1)
Quarter: 2017Q2

REPORT INFORMATION
  Report Type: Spontaneous
  Country: IT (occurrence: IT)
  Receive Date: 20170622
  Receipt Date: 20170622
  Transmission Date: 20170830
  Serious: Yes (Other)
  Sender: FDA-Public Use
  Company Number: IT-BAUSCH-BL-2017-019612

PATIENT
  Age: 18 Year
  Sex: Female

DRUGS (8)
  1. CEFTRIAXONE. [Concomitant]
     Active Substance: CEFTRIAXONE
     Indication: GLIOMA
     Dates: start: 201309
  2. DEXAMETHASONE. [Suspect]
     Active Substance: DEXAMETHASONE
     Dosage: HIGH DOSES
     Route: 065
     Dates: start: 201307
  3. DEXAMETHASONE. [Suspect]
     Active Substance: DEXAMETHASONE
     Dosage: DAILY IN EVENING
     Route: 065
     Dates: start: 2013
  4. TEMOZOLOMIDE. [Concomitant]
     Active Substance: TEMOZOLOMIDE
     Indication: GLIOMA
     Dates: start: 201306
  5. PANTOPRAZOLE [Concomitant]
     Active Substance: PANTOPRAZOLE
     Indication: PRODUCT USED FOR UNKNOWN INDICATION
     Dosage: DAILY IN EVENING
     Dates: start: 2013
  6. DEXAMETHASONE. [Suspect]
     Active Substance: DEXAMETHASONE
     Indication: GLIOMA
     Route: 065
     Dates: start: 201306
  7. IRINOTECAN [Concomitant]
     Active Substance: IRINOTECAN
     Indication: GLIOMA
     Dates: start: 201307
  8. BEVACIZUMAB [Concomitant]
     Active Substance: BEVACIZUMAB
     Indication: GLIOMA
     Dates: start: 201306

REACTIONS (1)
  - Diabetes mellitus [Unknown]
